FAERS Safety Report 19236117 (Version 13)
Quarter: 2022Q4

REPORT INFORMATION
  Report Type: Spontaneous
  Country: CA (occurrence: CA)
  Receive Date: 20210510
  Receipt Date: 20221202
  Transmission Date: 20230112
  Serious: Yes (Hospitalization, Other)
  Sender: FDA-Public Use
  Company Number: CA-MLMSERVICE-20210421-2849552-1

PATIENT
  Age: 47 Year
  Sex: Female

DRUGS (215)
  1. GABAPENTIN [Interacting]
     Active Substance: GABAPENTIN
     Indication: Pain
     Dosage: 600 MILLIGRAM, 1 EVERY 8 HOURS
     Route: 048
  2. GABAPENTIN [Interacting]
     Active Substance: GABAPENTIN
     Indication: Scoliosis
     Dosage: UNK
     Route: 065
  3. GABAPENTIN [Interacting]
     Active Substance: GABAPENTIN
     Dosage: UNK
     Route: 065
  4. GABAPENTIN [Interacting]
     Active Substance: GABAPENTIN
     Dosage: 600 MILLIGRAM, 4 EVERY 1 DAYS
     Route: 048
  5. GABAPENTIN [Interacting]
     Active Substance: GABAPENTIN
     Dosage: 600 MILLIGRAM, 4 EVERY 1 DAYS
     Route: 048
  6. GABAPENTIN [Interacting]
     Active Substance: GABAPENTIN
     Dosage: 400 MILLIGRAM, 4 EVERY 1 DAYS
     Route: 065
  7. GABAPENTIN [Interacting]
     Active Substance: GABAPENTIN
     Dosage: 600 MILLIGRAM, 3 EVERY 1 DAYS
     Route: 048
  8. GABAPENTIN [Interacting]
     Active Substance: GABAPENTIN
     Dosage: 600 MILLIGRAM
     Route: 048
  9. GABAPENTIN [Interacting]
     Active Substance: GABAPENTIN
     Dosage: 600 MILLIGRAM
     Route: 048
  10. GABAPENTIN [Interacting]
     Active Substance: GABAPENTIN
     Dosage: 400 MILLIGRAM, 1 EVERY .2 DAYS
     Route: 065
  11. GABAPENTIN [Interacting]
     Active Substance: GABAPENTIN
     Dosage: 600 MILLIGRAM, 1 EVERY .3 DAYS
     Route: 048
  12. RISPERIDONE [Interacting]
     Active Substance: RISPERIDONE
     Indication: Affective disorder
     Dosage: 1 MILLIGRAM, 1 EVERY 1 DAYS
     Route: 048
  13. RISPERIDONE [Interacting]
     Active Substance: RISPERIDONE
     Dosage: 0.25 MILLIGRAM, 1 EVERY 1 DAYS
     Route: 048
  14. RISPERIDONE [Interacting]
     Active Substance: RISPERIDONE
     Dosage: 1 MILLIGRAM, 1 EVERY 1 DAYS
     Route: 048
  15. DOXEPIN [Interacting]
     Active Substance: DOXEPIN
     Indication: Major depression
     Dosage: 50 MILLIGRAM, 1 EVERY 1 DAYS
     Route: 048
  16. DOXEPIN [Interacting]
     Active Substance: DOXEPIN
     Dosage: 100 MILLIGRAM, 1 EVERY 1 DAYS
     Route: 048
  17. DOXEPIN [Interacting]
     Active Substance: DOXEPIN
     Dosage: 150 MILLIGRAM, QD
     Route: 048
  18. DOXEPIN [Interacting]
     Active Substance: DOXEPIN
     Dosage: 150 MILLIGRAM
     Route: 065
  19. DOXEPIN [Interacting]
     Active Substance: DOXEPIN
     Dosage: 150 MILLIGRAM, 1 EVERY 1 DAYS
     Route: 048
  20. DOXEPIN [Interacting]
     Active Substance: DOXEPIN
     Dosage: 100 MILLIGRAM
     Route: 048
  21. DOXEPIN [Interacting]
     Active Substance: DOXEPIN
     Dosage: 50 MILLIGRAM
     Route: 048
  22. CYCLOBENZAPRINE [Interacting]
     Active Substance: CYCLOBENZAPRINE
     Indication: Pain
     Dosage: 10 MILLIGRAM, EVERY 12 HOURS
     Route: 048
  23. CYCLOBENZAPRINE [Interacting]
     Active Substance: CYCLOBENZAPRINE
     Indication: Scoliosis
     Dosage: 10 MILLIGRAM, 3 EVERY 1 DAYS
     Route: 048
  24. CYCLOBENZAPRINE [Interacting]
     Active Substance: CYCLOBENZAPRINE
     Dosage: 10 MILLIGRAM, EVERY 12 MONTHS
     Route: 048
  25. CYCLOBENZAPRINE [Interacting]
     Active Substance: CYCLOBENZAPRINE
     Dosage: 50 MILLIEQUIVALENT, 2 EVERY 1 DAYS
     Route: 048
  26. CYCLOBENZAPRINE [Interacting]
     Active Substance: CYCLOBENZAPRINE
     Dosage: 10 MILLIGRAM
     Route: 048
  27. CYCLOBENZAPRINE [Interacting]
     Active Substance: CYCLOBENZAPRINE
     Dosage: 10 MILLIGRAM, 2 EVERY 1 DAYS
     Route: 048
  28. CYCLOBENZAPRINE [Interacting]
     Active Substance: CYCLOBENZAPRINE
     Dosage: 10 MILLIGRAM, 1 EVERY 12 MONTHS
     Route: 048
  29. CYCLOBENZAPRINE [Interacting]
     Active Substance: CYCLOBENZAPRINE
     Dosage: 10 MILLIGRAM, 1 EVERY 1 DAYS
     Route: 048
  30. CYCLOBENZAPRINE [Interacting]
     Active Substance: CYCLOBENZAPRINE
     Dosage: 10 MILLIGRAM, 1 EVERY .5 DAYS
     Route: 048
  31. CYCLOBENZAPRINE [Interacting]
     Active Substance: CYCLOBENZAPRINE
     Dosage: 10 MILLIGRAM, 1 EVERY .3 DAYS
     Route: 048
  32. LORAZEPAM [Interacting]
     Active Substance: LORAZEPAM
     Indication: Withdrawal syndrome
     Dosage: UNK UNK, PRN (1 TO 2 MG PO 4 TIMES DAILY AS NEEDED)
     Route: 048
  33. LORAZEPAM [Interacting]
     Active Substance: LORAZEPAM
     Indication: Anxiety
     Dosage: UNK
     Route: 048
  34. LORAZEPAM [Interacting]
     Active Substance: LORAZEPAM
     Dosage: 2 MILLIGRAM, 4 EVERY 1 DAYS
     Route: 048
  35. LORAZEPAM [Interacting]
     Active Substance: LORAZEPAM
     Dosage: 5 MILLIGRAM
     Route: 065
  36. LORAZEPAM [Interacting]
     Active Substance: LORAZEPAM
     Dosage: 1 MILLIGRAM (ONCE)
     Route: 048
  37. LORAZEPAM [Interacting]
     Active Substance: LORAZEPAM
     Dosage: 1 MILLIGRAM (ONCE)
     Route: 030
  38. LORAZEPAM [Interacting]
     Active Substance: LORAZEPAM
     Dosage: 2 MILLIGRAM
     Route: 065
  39. LORAZEPAM [Interacting]
     Active Substance: LORAZEPAM
     Dosage: 6 MILLIGRAM
     Route: 065
  40. LORAZEPAM [Interacting]
     Active Substance: LORAZEPAM
     Dosage: 3 MILLIGRAM
     Route: 065
  41. LORAZEPAM [Interacting]
     Active Substance: LORAZEPAM
     Dosage: 4 MILLIGRAM
     Route: 065
  42. LORAZEPAM [Interacting]
     Active Substance: LORAZEPAM
     Dosage: 7 MILLIGRAM
     Route: 065
  43. LORAZEPAM [Interacting]
     Active Substance: LORAZEPAM
     Dosage: 7 MILLIGRAM
     Route: 065
  44. LORAZEPAM [Interacting]
     Active Substance: LORAZEPAM
     Dosage: UNK, PRN
     Route: 048
  45. LORAZEPAM [Interacting]
     Active Substance: LORAZEPAM
     Dosage: 1 MILLIGRAM (ONCE)
     Route: 030
  46. LORAZEPAM [Interacting]
     Active Substance: LORAZEPAM
     Dosage: UNK
     Route: 048
  47. LORAZEPAM [Interacting]
     Active Substance: LORAZEPAM
     Dosage: UNK
     Route: 065
  48. LORAZEPAM [Interacting]
     Active Substance: LORAZEPAM
     Dosage: UNK
     Route: 065
  49. LORAZEPAM [Interacting]
     Active Substance: LORAZEPAM
     Dosage: UNK
     Route: 048
  50. LORAZEPAM [Interacting]
     Active Substance: LORAZEPAM
     Dosage: UNK UNK, PRN (AS REQUIRED)
     Route: 048
  51. LORAZEPAM [Interacting]
     Active Substance: LORAZEPAM
     Dosage: 2 MILLIGRAM, 1 EVERY .2 DAYS
     Route: 048
  52. LORAZEPAM [Interacting]
     Active Substance: LORAZEPAM
     Dosage: 1 MILLIGRAM, 1 EVERY 1 DAYS
     Route: 030
  53. FLUOXETINE HYDROCHLORIDE [Suspect]
     Active Substance: FLUOXETINE HYDROCHLORIDE
     Indication: Major depression
     Dosage: 20 MILLIGRAM, 1 EVERY 1 DAYS
     Route: 048
  54. FLUOXETINE HYDROCHLORIDE [Suspect]
     Active Substance: FLUOXETINE HYDROCHLORIDE
     Dosage: 60 MILLIGRAM, 1 EVERY 1 DAYS
     Route: 048
  55. FLUOXETINE HYDROCHLORIDE [Suspect]
     Active Substance: FLUOXETINE HYDROCHLORIDE
     Dosage: 80 MILLIGRAM, 1 EVERY 1 DAYS
     Route: 048
  56. FLUOXETINE HYDROCHLORIDE [Suspect]
     Active Substance: FLUOXETINE HYDROCHLORIDE
     Dosage: 40 MILLIGRAM, 1 EVERY 1 DAYS
     Route: 048
  57. FLUOXETINE HYDROCHLORIDE [Suspect]
     Active Substance: FLUOXETINE HYDROCHLORIDE
     Dosage: 80 MILLIGRAM, 1 EVERY 1 DAYS
     Route: 048
  58. DOXEPIN [Interacting]
     Active Substance: DOXEPIN
     Indication: Major depression
     Dosage: UNK
     Route: 048
  59. DOXEPIN [Interacting]
     Active Substance: DOXEPIN
     Dosage: 150 MILLIGRAM
     Route: 048
  60. DOXEPIN [Interacting]
     Active Substance: DOXEPIN
     Dosage: 100 MILLIGRAM, 1 EVERY 1 DAYS
     Route: 048
  61. DOXEPIN [Interacting]
     Active Substance: DOXEPIN
     Dosage: 150 MILLIGRAM, 1 EVERY 1 DAYS
     Route: 048
  62. DOXEPIN [Interacting]
     Active Substance: DOXEPIN
     Dosage: 50 MILLIGRAM, 1 EVERY 1 DAYS
     Route: 048
  63. DOXEPIN [Interacting]
     Active Substance: DOXEPIN
     Dosage: 150 MILLIGRAM, 1 EVERY 1 DAYS
     Route: 048
  64. METHADONE [Interacting]
     Active Substance: METHADONE HYDROCHLORIDE
     Indication: Drug use disorder
     Dosage: 75 MILLIGRAM, 1 EVERY 1 DAYS
     Route: 048
  65. METHADONE [Interacting]
     Active Substance: METHADONE HYDROCHLORIDE
     Dosage: 50 MILLIGRAM
     Route: 065
  66. METHADONE [Interacting]
     Active Substance: METHADONE HYDROCHLORIDE
     Dosage: 60 MILLIGRAM, 1 EVERY 1 DAYS
     Route: 048
  67. METHADONE [Interacting]
     Active Substance: METHADONE HYDROCHLORIDE
     Dosage: 60 MILLIGRAM
     Route: 065
  68. METHADONE [Interacting]
     Active Substance: METHADONE HYDROCHLORIDE
     Dosage: 75 MILLIGRAM, 1 EVERY 1 DAYS
     Route: 048
  69. METHADONE [Interacting]
     Active Substance: METHADONE HYDROCHLORIDE
     Dosage: 40 MILLIGRAM
     Route: 065
  70. METHADONE [Interacting]
     Active Substance: METHADONE HYDROCHLORIDE
     Dosage: 75 MILLIGRAM, 1 EVERY 1 DAYS
     Route: 048
  71. METHADONE [Interacting]
     Active Substance: METHADONE HYDROCHLORIDE
     Dosage: 75 MILLIGRAM
     Route: 048
  72. METHADONE [Interacting]
     Active Substance: METHADONE HYDROCHLORIDE
     Dosage: 75 MILLIGRAM, 1 EVERY 1 DAYS
     Route: 048
  73. METHADONE [Interacting]
     Active Substance: METHADONE HYDROCHLORIDE
     Dosage: 40 MILLIGRAM
     Route: 048
  74. QUETIAPINE [Interacting]
     Active Substance: QUETIAPINE
     Indication: Major depression
     Dosage: 100 MILLIGRAM, OD (EXTENDED-RELEASE AT BEDTIME)
     Route: 048
  75. QUETIAPINE [Interacting]
     Active Substance: QUETIAPINE
     Dosage: UNK
     Route: 065
  76. QUETIAPINE [Interacting]
     Active Substance: QUETIAPINE
     Dosage: 50 MILLIGRAM, 4 EVERY 1 DAYS
     Route: 065
  77. QUETIAPINE [Interacting]
     Active Substance: QUETIAPINE
     Dosage: 100 MILLIGRAM
     Route: 048
  78. QUETIAPINE [Interacting]
     Active Substance: QUETIAPINE
     Dosage: UNK, PRN (AS REQUIRED)
     Route: 048
  79. QUETIAPINE [Interacting]
     Active Substance: QUETIAPINE
     Dosage: UNK, QD
     Route: 048
  80. QUETIAPINE [Interacting]
     Active Substance: QUETIAPINE
     Dosage: UNK
     Route: 048
  81. QUETIAPINE [Interacting]
     Active Substance: QUETIAPINE
     Dosage: 100 MILLIGRAM, 1 EVERY 1 DAYS
     Route: 048
  82. QUETIAPINE [Interacting]
     Active Substance: QUETIAPINE
     Dosage: 100 MILLIGRAM, 1 EVERY 1 DAYS
     Route: 048
  83. QUETIAPINE [Interacting]
     Active Substance: QUETIAPINE
     Dosage: UNK
     Route: 065
  84. QUETIAPINE [Interacting]
     Active Substance: QUETIAPINE
     Dosage: 50 MILLIGRAM, 1 EVERY .2 DAYS
     Route: 065
  85. FLUOXETINE [Interacting]
     Active Substance: FLUOXETINE HYDROCHLORIDE
     Indication: Major depression
     Dosage: 20 MILLIGRAM, 1 EVERY 1 DAYS
     Route: 048
  86. FLUOXETINE [Interacting]
     Active Substance: FLUOXETINE HYDROCHLORIDE
     Dosage: 20 MILLIGRAM, 1 EVERY 1 DAYS
     Route: 048
  87. FLUOXETINE [Interacting]
     Active Substance: FLUOXETINE HYDROCHLORIDE
     Dosage: 40 MILLIGRAM, 1 EVERY 1 DAYS
     Route: 048
  88. FLUOXETINE [Interacting]
     Active Substance: FLUOXETINE HYDROCHLORIDE
     Dosage: 60 MILLIGRAM, 1 EVERY 1 DAYS
     Route: 048
  89. FLUOXETINE [Interacting]
     Active Substance: FLUOXETINE HYDROCHLORIDE
     Dosage: 40 MILLIGRAM, 1 EVERY 1 DAYS
     Route: 048
  90. FLUOXETINE [Interacting]
     Active Substance: FLUOXETINE HYDROCHLORIDE
     Dosage: 80 MILLIGRAM, 1 EVERY 1 DAYS
     Route: 048
  91. FLUOXETINE [Interacting]
     Active Substance: FLUOXETINE HYDROCHLORIDE
     Dosage: 60 MILLIGRAM, 1 EVERY 1 DAYS
     Route: 048
  92. FLUOXETINE [Interacting]
     Active Substance: FLUOXETINE HYDROCHLORIDE
     Dosage: 80 MILLIGRAM
     Route: 048
  93. FLUOXETINE [Interacting]
     Active Substance: FLUOXETINE HYDROCHLORIDE
     Dosage: 60 MILLIGRAM, 1 EVERY 1 DAYS
     Route: 048
  94. FLUOXETINE [Interacting]
     Active Substance: FLUOXETINE HYDROCHLORIDE
     Dosage: 60 MILLIGRAM, 1 EVERY 1 DAYS
     Route: 048
  95. FLUOXETINE [Interacting]
     Active Substance: FLUOXETINE HYDROCHLORIDE
     Dosage: 40 MILLIGRAM, 1 EVERY 1 DAYS
     Route: 048
  96. FLUOXETINE [Interacting]
     Active Substance: FLUOXETINE HYDROCHLORIDE
     Dosage: 40 MILLIGRAM, 1 EVERY 1 DAYS
     Route: 048
  97. FLUOXETINE [Interacting]
     Active Substance: FLUOXETINE HYDROCHLORIDE
     Dosage: 20 MILLIGRAM, 1 EVERY 1 DAYS
     Route: 048
  98. FLUOXETINE [Interacting]
     Active Substance: FLUOXETINE HYDROCHLORIDE
     Dosage: 80 MILLIGRAM, 1 EVERY 1 DAYS
     Route: 048
  99. FLUOXETINE [Interacting]
     Active Substance: FLUOXETINE HYDROCHLORIDE
     Indication: Major depression
     Dosage: 20 MILLIGRAM, 1 EVERY 1 DAYS
     Route: 048
  100. FLUOXETINE [Interacting]
     Active Substance: FLUOXETINE HYDROCHLORIDE
     Dosage: 40 MILLIGRAM, QD
     Route: 048
  101. FLUOXETINE [Interacting]
     Active Substance: FLUOXETINE HYDROCHLORIDE
     Dosage: 60 MILLIGRAM, QD
     Route: 048
  102. FLUOXETINE [Interacting]
     Active Substance: FLUOXETINE HYDROCHLORIDE
     Dosage: 80 MILLIGRAM, QD
     Route: 048
  103. FLUOXETINE [Interacting]
     Active Substance: FLUOXETINE HYDROCHLORIDE
     Dosage: 40 MILLIGRAM, QD
     Route: 048
  104. FLUOXETINE [Interacting]
     Active Substance: FLUOXETINE HYDROCHLORIDE
     Dosage: 60 MILLIGRAM, QD
     Route: 048
  105. FLUOXETINE [Interacting]
     Active Substance: FLUOXETINE HYDROCHLORIDE
     Dosage: 80 MILLIGRAM, 1 EVERY 1 DAYS
     Route: 048
  106. FLUOXETINE [Interacting]
     Active Substance: FLUOXETINE HYDROCHLORIDE
     Dosage: 60 MILLIGRAM, 1 EVERY 1 DAYS
     Route: 048
  107. FLUOXETINE [Interacting]
     Active Substance: FLUOXETINE HYDROCHLORIDE
     Dosage: 60 MILLIGRAM, 1 EVERY 1 DAYS
     Route: 048
  108. FLUOXETINE [Interacting]
     Active Substance: FLUOXETINE HYDROCHLORIDE
     Dosage: 40 MILLIGRAM, 1 EVERY 1 DAYS
     Route: 048
  109. FLUOXETINE [Interacting]
     Active Substance: FLUOXETINE HYDROCHLORIDE
     Dosage: 40 MILLIGRAM, 1 EVERY 1 DAYS
     Route: 048
  110. FLUOXETINE [Interacting]
     Active Substance: FLUOXETINE HYDROCHLORIDE
     Dosage: 80 MILLIGRAM
     Route: 048
  111. FLUOXETINE [Interacting]
     Active Substance: FLUOXETINE HYDROCHLORIDE
     Dosage: UNK
     Route: 048
  112. FLUOXETINE [Interacting]
     Active Substance: FLUOXETINE HYDROCHLORIDE
     Dosage: UNK
     Route: 048
  113. FLUOXETINE [Interacting]
     Active Substance: FLUOXETINE HYDROCHLORIDE
     Dosage: 60 MILLIGRAM, 1 EVERY 1 DAYS
     Route: 048
  114. FLUOXETINE [Interacting]
     Active Substance: FLUOXETINE HYDROCHLORIDE
     Dosage: UNK
     Route: 048
  115. FLUOXETINE [Interacting]
     Active Substance: FLUOXETINE HYDROCHLORIDE
     Dosage: 80 MILLIGRAM
     Route: 048
  116. FLUOXETINE [Interacting]
     Active Substance: FLUOXETINE HYDROCHLORIDE
     Dosage: 40 MILLIGRAM, 1 EVERY 1 DAYS
     Route: 048
  117. FLUOXETINE [Interacting]
     Active Substance: FLUOXETINE HYDROCHLORIDE
     Dosage: UNK
     Route: 048
  118. FLUOXETINE [Interacting]
     Active Substance: FLUOXETINE HYDROCHLORIDE
     Dosage: UNK
     Route: 048
  119. FLUOXETINE [Interacting]
     Active Substance: FLUOXETINE HYDROCHLORIDE
     Dosage: 40 MILLIGRAM
     Route: 048
  120. FLUOXETINE [Interacting]
     Active Substance: FLUOXETINE HYDROCHLORIDE
     Dosage: 20 MILLIGRAM
     Route: 048
  121. FLUOXETINE [Interacting]
     Active Substance: FLUOXETINE HYDROCHLORIDE
     Dosage: 60 MILLIGRAM
     Route: 048
  122. FLUOXETINE [Interacting]
     Active Substance: FLUOXETINE HYDROCHLORIDE
     Dosage: 40 MILLIGRAM
     Route: 048
  123. FLUOXETINE [Interacting]
     Active Substance: FLUOXETINE HYDROCHLORIDE
     Dosage: 60 MILLIGRAM
     Route: 048
  124. FLUOXETINE [Interacting]
     Active Substance: FLUOXETINE HYDROCHLORIDE
     Dosage: 20 MILLIGRAM
     Route: 048
  125. FLUOXETINE [Interacting]
     Active Substance: FLUOXETINE HYDROCHLORIDE
     Dosage: 80 MILLIGRAM, 1 EVERY 1 DAYS
     Route: 048
  126. DIVALPROEX SODIUM [Interacting]
     Active Substance: DIVALPROEX SODIUM
     Indication: Affective disorder
     Dosage: UNK
     Route: 048
  127. DIVALPROEX SODIUM [Interacting]
     Active Substance: DIVALPROEX SODIUM
     Indication: Mania
     Dosage: 750 MILLIGRAM
     Route: 048
  128. DIVALPROEX SODIUM [Interacting]
     Active Substance: DIVALPROEX SODIUM
     Dosage: 250 MILLIGRAM
     Route: 048
  129. DIVALPROEX SODIUM [Interacting]
     Active Substance: DIVALPROEX SODIUM
     Dosage: 500 MILLIGRAM, HS
     Route: 048
  130. DIVALPROEX SODIUM [Interacting]
     Active Substance: DIVALPROEX SODIUM
     Dosage: 250 MILLIGRAM, AM
     Route: 048
  131. DIVALPROEX SODIUM [Interacting]
     Active Substance: DIVALPROEX SODIUM
     Dosage: 500 MILLIGRAM
     Route: 048
  132. RISPERDAL [Interacting]
     Active Substance: RISPERIDONE
     Indication: Affective disorder
     Dosage: 1 MILLIGRAM, 1 EVERY 1 DAYS
     Route: 048
  133. RISPERDAL [Interacting]
     Active Substance: RISPERIDONE
     Dosage: 0.25 MILLIGRAM, 4.0 DAYS
     Route: 048
  134. DOXEPIN HYDROCHLORIDE [Interacting]
     Active Substance: DOXEPIN HYDROCHLORIDE
     Indication: Major depression
     Dosage: 150 MILLIGRAM, 1 EVERY 1 DAYS
     Route: 048
  135. DOXEPIN HYDROCHLORIDE [Interacting]
     Active Substance: DOXEPIN HYDROCHLORIDE
     Dosage: 50 MILLIGRAM, 1 EVERY 1 DAYS
     Route: 048
  136. DOXEPIN HYDROCHLORIDE [Interacting]
     Active Substance: DOXEPIN HYDROCHLORIDE
     Dosage: 100 MILLIGRAM, 1 EVERY 1 DAYS
     Route: 048
  137. DOXEPIN HYDROCHLORIDE [Interacting]
     Active Substance: DOXEPIN HYDROCHLORIDE
     Dosage: 150 MILLIGRAM, 1 EVERY 1 DAYS
     Route: 048
  138. DOXEPIN HYDROCHLORIDE [Interacting]
     Active Substance: DOXEPIN HYDROCHLORIDE
     Dosage: 150 MILLIGRAM
     Route: 048
  139. DOXEPIN HYDROCHLORIDE [Interacting]
     Active Substance: DOXEPIN HYDROCHLORIDE
     Dosage: 150 MILLIGRAM, 1 EVERY 1 DAYS
     Route: 048
  140. DOXEPIN HYDROCHLORIDE [Interacting]
     Active Substance: DOXEPIN HYDROCHLORIDE
     Dosage: 100 MILLIGRAM, 1 EVERY 1 DAYS
     Route: 048
  141. DOXEPIN HYDROCHLORIDE [Interacting]
     Active Substance: DOXEPIN HYDROCHLORIDE
     Dosage: 50 MILLIGRAM, 1 EVERY 1 DAYS
     Route: 048
  142. QUETIAPINE FUMARATE [Interacting]
     Active Substance: QUETIAPINE FUMARATE
     Indication: Major depression
     Dosage: UNK
     Route: 048
  143. QUETIAPINE FUMARATE [Interacting]
     Active Substance: QUETIAPINE FUMARATE
     Dosage: UNK
     Route: 065
  144. QUETIAPINE FUMARATE [Interacting]
     Active Substance: QUETIAPINE FUMARATE
     Dosage: 100 MILLIGRAM, QD
     Route: 048
  145. QUETIAPINE FUMARATE [Interacting]
     Active Substance: QUETIAPINE FUMARATE
     Dosage: UNK, PRN, 25 TO 50 MG IMMEDIATE-RELEASE 4 TIMES DAILY AS NEEDED
     Route: 065
  146. QUETIAPINE FUMARATE [Interacting]
     Active Substance: QUETIAPINE FUMARATE
     Indication: Major depression
     Dosage: UNK
     Route: 048
  147. QUETIAPINE FUMARATE [Interacting]
     Active Substance: QUETIAPINE FUMARATE
     Dosage: UNK
     Route: 065
  148. DOXEPIN [Interacting]
     Active Substance: DOXEPIN
     Indication: Major depression
     Dosage: 50 MILLIGRAM, QD
     Route: 048
  149. QUETIAPINE [Interacting]
     Active Substance: QUETIAPINE
     Indication: Major depression
     Dosage: 100 MILLIGRAM, 1 EVERY 1 DAYS
     Route: 048
  150. QUETIAPINE [Interacting]
     Active Substance: QUETIAPINE
     Dosage: UNK
     Route: 065
  151. QUETIAPINE [Interacting]
     Active Substance: QUETIAPINE
     Dosage: UNK, EVERY 1 DAYS
     Route: 048
  152. QUETIAPINE [Interacting]
     Active Substance: QUETIAPINE
     Dosage: UNK, PRN (25 TO 50 MG IMMEDIATE-RELEASE 4 TIMES DAILY AS NEEDED)
     Route: 065
  153. DOXEPIN [Interacting]
     Active Substance: DOXEPIN
     Indication: Major depression
     Dosage: 100 MILLIGRAM, QD
     Route: 048
  154. DOXEPIN [Interacting]
     Active Substance: DOXEPIN
     Dosage: 150 MILLIGRAM, QD
     Route: 048
  155. DIVALPROEX SODIUM [Suspect]
     Active Substance: DIVALPROEX SODIUM
     Indication: Affective disorder
     Dosage: 250 MILLIGRAM, 1 EVERY 1 DAYS
     Route: 048
  156. DIVALPROEX SODIUM [Suspect]
     Active Substance: DIVALPROEX SODIUM
     Indication: Mania
     Dosage: 500 MILLIGRAM, 1 EVERY 1 DAYS
     Route: 048
  157. DIVALPROEX SODIUM [Suspect]
     Active Substance: DIVALPROEX SODIUM
     Dosage: UNK UNK, QD
     Route: 048
  158. DIVALPROEX SODIUM [Suspect]
     Active Substance: DIVALPROEX SODIUM
     Dosage: UNK UNK, QD
     Route: 048
  159. DIVALPROEX SODIUM [Suspect]
     Active Substance: DIVALPROEX SODIUM
     Dosage: UNK UNK, QD
     Route: 048
  160. DIVALPROEX SODIUM [Suspect]
     Active Substance: DIVALPROEX SODIUM
     Dosage: UNK
     Route: 048
  161. DIVALPROEX SODIUM [Suspect]
     Active Substance: DIVALPROEX SODIUM
     Dosage: 250 MILLIGRAM
     Route: 048
  162. DIVALPROEX SODIUM [Suspect]
     Active Substance: DIVALPROEX SODIUM
     Dosage: 250 MILLIGRAM, 1 EVERY 1 DAYS
     Route: 048
  163. DIVALPROEX SODIUM [Suspect]
     Active Substance: DIVALPROEX SODIUM
     Dosage: 500 MILLIGRAM, 1 EVERY 1 DAYS
     Route: 048
  164. DIVALPROEX SODIUM [Suspect]
     Active Substance: DIVALPROEX SODIUM
     Dosage: UNK
     Route: 065
  165. DIVALPROEX SODIUM [Suspect]
     Active Substance: DIVALPROEX SODIUM
     Dosage: UNK
     Route: 048
  166. DIVALPROEX SODIUM [Suspect]
     Active Substance: DIVALPROEX SODIUM
     Dosage: 750 MILLIGRAM
     Route: 048
  167. DIVALPROEX SODIUM [Suspect]
     Active Substance: DIVALPROEX SODIUM
     Dosage: 250 MILLIGRAM
     Route: 048
  168. DIVALPROEX SODIUM [Suspect]
     Active Substance: DIVALPROEX SODIUM
     Dosage: 500 MILLIGRAM
     Route: 048
  169. DIVALPROEX SODIUM [Suspect]
     Active Substance: DIVALPROEX SODIUM
     Dosage: 250 MILLIGRAM, EVERY 1 DAYS
     Route: 048
  170. DIVALPROEX SODIUM [Suspect]
     Active Substance: DIVALPROEX SODIUM
     Dosage: 500 MILLIGRAM, EVERY 1 DAYS
     Route: 048
  171. DIVALPROEX SODIUM [Suspect]
     Active Substance: DIVALPROEX SODIUM
     Dosage: 750 MILLIGRAM
     Route: 065
  172. CYCLOBENZAPRINE [Suspect]
     Active Substance: CYCLOBENZAPRINE
     Indication: Pain
     Dosage: 10 MILLIGRAM
     Route: 048
  173. METHADONE HYDROCHLORIDE [Suspect]
     Active Substance: METHADONE HYDROCHLORIDE
     Indication: Drug use disorder
     Dosage: 75.0 MILLIGRAM, 1 EVERY 1 DAYS
     Route: 048
  174. ESTRADIOL [Concomitant]
     Active Substance: ESTRADIOL
     Indication: Endometriosis
     Dosage: 0.5 MILLIGRAM, 1 EVERY 1 DAYS
     Route: 048
  175. ESTRADIOL [Concomitant]
     Active Substance: ESTRADIOL
     Dosage: UNK
     Route: 065
  176. NAPROXEN [Concomitant]
     Active Substance: NAPROXEN
     Indication: Pain
     Dosage: 500 MILLIGRAM, 2 EVERY 1 DAYS
     Route: 048
  177. NAPROXEN [Concomitant]
     Active Substance: NAPROXEN
     Dosage: 500 MILLIGRAM
     Route: 048
  178. NAPROXEN [Concomitant]
     Active Substance: NAPROXEN
     Dosage: 500 MILLIGRAM, PRN
     Route: 048
  179. NAPROXEN [Concomitant]
     Active Substance: NAPROXEN
     Dosage: UNK
     Route: 065
  180. NAPROXEN [Concomitant]
     Active Substance: NAPROXEN
     Dosage: 500 MILLIGRAM, PRN (AS REQUIRED)
     Route: 048
  181. NAPROXEN [Concomitant]
     Active Substance: NAPROXEN
     Dosage: 500 MILLIGRAM
     Route: 048
  182. ATENOLOL [Concomitant]
     Active Substance: ATENOLOL
     Indication: Hypertension
     Dosage: 50 MILLIGRAM, 1 EVERY 1 DAYS
     Route: 048
  183. ATENOLOL [Concomitant]
     Active Substance: ATENOLOL
     Dosage: UNK
     Route: 065
  184. ATENOLOL [Concomitant]
     Active Substance: ATENOLOL
     Dosage: 50 MILLIGRAM, 1 EVERY 1 DAYS
     Route: 048
  185. ATENOLOL [Concomitant]
     Active Substance: ATENOLOL
     Dosage: UNK
     Route: 065
  186. ATENOLOL [Concomitant]
     Active Substance: ATENOLOL
     Dosage: UNK, 1 EVERY 1 DAYS
     Route: 048
  187. ATENOLOL [Concomitant]
     Active Substance: ATENOLOL
     Dosage: UNK, 1 EVERY 1 DAYS
     Route: 048
  188. ATENOLOL [Concomitant]
     Active Substance: ATENOLOL
     Dosage: UNK
     Route: 065
  189. TIOTROPIUM [Concomitant]
     Active Substance: TIOTROPIUM
     Indication: Chronic obstructive pulmonary disease
     Dosage: 5 MICROGRAM, 1 EVERY 1 DAYS
  190. TIOTROPIUM [Concomitant]
     Active Substance: TIOTROPIUM
     Dosage: UNK
     Route: 065
  191. TIOTROPIUM [Concomitant]
     Active Substance: TIOTROPIUM
     Dosage: 5 MICROGRAM, 1 EVERY 1 DAYS
     Route: 055
  192. TIOTROPIUM [Concomitant]
     Active Substance: TIOTROPIUM
     Dosage: 5 MICROGRAM, 1 EVERY 1 DAYS
     Route: 065
  193. FUROSEMIDE [Concomitant]
     Active Substance: FUROSEMIDE
     Indication: Oedema peripheral
     Dosage: 40 MILLIGRAM, PRN (ONCE DAILY)
     Route: 048
  194. FUROSEMIDE [Concomitant]
     Active Substance: FUROSEMIDE
     Dosage: UNK
     Route: 065
  195. FUROSEMIDE [Concomitant]
     Active Substance: FUROSEMIDE
     Dosage: 40 MILLIGRAM, 1 EVERY 1 DAYS
     Route: 048
  196. FUROSEMIDE [Concomitant]
     Active Substance: FUROSEMIDE
     Dosage: 40 MILLIGRAM
     Route: 048
  197. FUROSEMIDE [Concomitant]
     Active Substance: FUROSEMIDE
     Dosage: 40 MILLIGRAM, PRN (AS REQUIRED)
     Route: 048
  198. ALBUTEROL [Concomitant]
     Active Substance: ALBUTEROL
     Indication: Chronic obstructive pulmonary disease
     Dosage: 200 MICROGRAM, PRN (BID)
  199. ALBUTEROL [Concomitant]
     Active Substance: ALBUTEROL
     Dosage: UNK
     Route: 065
  200. ALBUTEROL [Concomitant]
     Active Substance: ALBUTEROL
     Dosage: 200 MICROGRAM
  201. ALBUTEROL [Concomitant]
     Active Substance: ALBUTEROL
     Dosage: 200 MICROGRAM, 2 EVERY 1 DAYS
  202. ALBUTEROL [Concomitant]
     Active Substance: ALBUTEROL
     Dosage: 200 MICROGRAM, PRN (BID)
     Route: 055
  203. ALBUTEROL [Concomitant]
     Active Substance: ALBUTEROL
     Dosage: 200 MICROGRAM
     Route: 065
  204. ALBUTEROL [Concomitant]
     Active Substance: ALBUTEROL
     Dosage: 200 MICROGRAM
     Route: 065
  205. ALBUTEROL [Concomitant]
     Active Substance: ALBUTEROL
     Dosage: 200 MICROGRAM, PRN (AS REQUIRED)
     Route: 065
  206. ALBUTEROL [Concomitant]
     Active Substance: ALBUTEROL
     Dosage: 200 MICROGRAM, 1 EVERY .5 DAYS
  207. NALOXONE [Concomitant]
     Active Substance: NALOXONE
     Indication: Pain
     Dosage: UNK
     Route: 065
  208. NALOXONE [Concomitant]
     Active Substance: NALOXONE
     Dosage: 500.0 MILLIGRAM, 1 EVERY .5 DAYS
     Route: 048
  209. NALOXONE [Concomitant]
     Active Substance: NALOXONE
     Dosage: 5.0 MICROGRAM, 1 EVERY 1 DAYS
     Route: 065
  210. SPIRIVA [Concomitant]
     Active Substance: TIOTROPIUM BROMIDE MONOHYDRATE
     Indication: Product used for unknown indication
     Dosage: UNK
     Route: 065
  211. ATENOLOL [Concomitant]
     Active Substance: ATENOLOL
     Indication: Hypertension
     Dosage: UNK
     Route: 065
  212. ATENOLOL [Concomitant]
     Active Substance: ATENOLOL
     Dosage: 50 MILLIGRAM, EVERY 1 DAYS
     Route: 048
  213. ATENOLOL [Concomitant]
     Active Substance: ATENOLOL
     Dosage: 50 MILLIGRAM, 1 EVERY 1 DAYS
     Route: 048
  214. CLONIDINE [Concomitant]
     Active Substance: CLONIDINE
     Indication: Product used for unknown indication
     Dosage: UNK
     Route: 065
  215. TIOTROPIUM BROMIDE [Concomitant]
     Active Substance: TIOTROPIUM BROMIDE
     Indication: Chronic obstructive pulmonary disease
     Dosage: 5 MICROGRAM, 1 EVERY 1 DAYS

REACTIONS (5)
  - Toxicity to various agents [Unknown]
  - Drug interaction [Unknown]
  - Off label use [Unknown]
  - Respiratory depression [Unknown]
  - Depressed level of consciousness [Unknown]
